FAERS Safety Report 25201858 (Version 1)
Quarter: 2025Q2

REPORT INFORMATION
  Report Type: Spontaneous
  Country: GB (occurrence: GB)
  Receive Date: 20250416
  Receipt Date: 20250416
  Transmission Date: 20250717
  Serious: Yes (Other)
  Sender: AMGEN
  Company Number: GB-AMGEN-GBRSP2025072185

PATIENT
  Age: 69 Year
  Sex: Female

DRUGS (8)
  1. USTEKINUMAB [Suspect]
     Active Substance: USTEKINUMAB
     Indication: Psoriasis
     Dosage: 45 MILLIGRAM, EVERY 12 WEEKS
     Route: 065
     Dates: start: 20250115, end: 20250310
  2. STELARA [Concomitant]
     Active Substance: USTEKINUMAB
  3. ATORVASTATIN [Concomitant]
     Active Substance: ATORVASTATIN
     Dates: start: 20210816
  4. LERCANIDIPINE [Concomitant]
     Active Substance: LERCANIDIPINE
     Dates: start: 20250324
  5. ASPIRIN [Concomitant]
     Active Substance: ASPIRIN
     Dates: start: 20170623
  6. RAMIPRIL [Concomitant]
     Active Substance: RAMIPRIL
     Dates: start: 20230509
  7. GLICLAZIDE [Concomitant]
     Active Substance: GLICLAZIDE
     Dates: start: 20210922
  8. CHOLECALCIFEROL [Concomitant]
     Active Substance: CHOLECALCIFEROL
     Dates: start: 20190904

REACTIONS (2)
  - Dysphagia [Recovered/Resolved]
  - Product substitution issue [Unknown]

NARRATIVE: CASE EVENT DATE: 20250115
